FAERS Safety Report 10956155 (Version 1)
Quarter: 2015Q1

REPORT INFORMATION
  Report Type: Spontaneous
  Country: US (occurrence: None)
  Receive Date: 20150226
  Receipt Date: 20150226
  Transmission Date: 20150721
  Serious: Yes (Other)
  Sender: FDA-Public Use
  Company Number: TPA2013A03387

PATIENT
  Age: 75 Year
  Sex: Male
  Weight: 90.72 kg

DRUGS (11)
  1. PRANDIN (REPAGLINIDE) [Concomitant]
  2. ACTOS [Suspect]
     Active Substance: PIOGLITAZONE HYDROCHLORIDE
     Indication: TYPE 2 DIABETES MELLITUS
     Dates: start: 201103, end: 201108
  3. GLUCOTROL [Concomitant]
     Active Substance: GLIPIZIDE
  4. AVANDIA (ROSIGLITAZONE MALEATE) [Concomitant]
  5. BYETTA (EXENATIDE) [Concomitant]
  6. ACTOPLUS MET [Suspect]
     Active Substance: METFORMIN HYDROCHLORIDE\PIOGLITAZONE HYDROCHLORIDE
     Indication: TYPE 2 DIABETES MELLITUS
     Dates: start: 200708, end: 201103
  7. GLUCOPHAGE [Concomitant]
     Active Substance: METFORMIN HYDROCHLORIDE
  8. METFORMIN [Concomitant]
     Active Substance: METFORMIN HYDROCHLORIDE
  9. DIABETA [Concomitant]
     Active Substance: GLYBURIDE
  10. LISPRO INSULIN (INSULIN LISPRO) [Concomitant]
  11. JANUVIA [Concomitant]
     Active Substance: SITAGLIPTIN PHOSPHATE

REACTIONS (1)
  - Bladder cancer [None]

NARRATIVE: CASE EVENT DATE: 200905
